FAERS Safety Report 7801770-2 (Version None)
Quarter: 2011Q4

REPORT INFORMATION
  Report Type: 
  Country: None (occurrence: None)
  Receive Date: 20111007
  Receipt Date: 20110928
  Transmission Date: 20120403
  Serious: Yes (Death)
  Sender: FDA-Public Use
  Company Number: JP-SANOFI-AVENTIS-2011SA038195

PATIENT
  Age: 75 Year
  Sex: Female
  Weight: 41 kg

DRUGS (24)
  1. ALLEGRA [Suspect]
     Route: 048
     Dates: start: 20100401, end: 20100428
  2. ALLEGRA [Suspect]
     Route: 048
     Dates: start: 20110223, end: 20110324
  3. ALLEGRA [Suspect]
     Route: 048
     Dates: start: 20110412, end: 20110516
  4. ALLEGRA [Suspect]
     Route: 048
     Dates: start: 20100401, end: 20100428
  5. ALLEGRA [Suspect]
     Route: 048
     Dates: start: 20100520, end: 20100616
  6. ALLEGRA [Suspect]
     Route: 048
     Dates: start: 20100629, end: 20100726
  7. ALLEGRA [Suspect]
     Route: 048
     Dates: start: 20110223, end: 20110324
  8. ALLEGRA [Suspect]
     Route: 048
     Dates: start: 20110412, end: 20110516
  9. RIZE [Concomitant]
     Route: 048
     Dates: start: 20110601, end: 20110601
  10. ALLEGRA [Suspect]
     Route: 048
     Dates: start: 20110120, end: 20110216
  11. ALLEGRA [Suspect]
     Route: 048
     Dates: start: 20110223, end: 20110324
  12. NEO-MERCAZOLE TAB [Concomitant]
     Indication: HYPERTHYROIDISM
     Dates: start: 20081201
  13. ALLEGRA [Suspect]
     Route: 048
     Dates: start: 20100629, end: 20100726
  14. ALLEGRA [Suspect]
     Route: 048
     Dates: start: 20110120, end: 20110216
  15. ALLEGRA [Suspect]
     Route: 048
     Dates: start: 20100520, end: 20100616
  16. SULPIRIDE [Concomitant]
  17. ALLEGRA [Suspect]
     Route: 048
     Dates: start: 20101014, end: 20101110
  18. ALLEGRA [Suspect]
     Route: 048
     Dates: start: 20100401, end: 20100428
  19. ALLEGRA [Suspect]
     Route: 048
     Dates: start: 20100629, end: 20100726
  20. ALLEGRA [Suspect]
     Route: 048
     Dates: start: 20110120, end: 20110216
  21. ALLEGRA [Suspect]
     Indication: DERMATITIS ALLERGIC
     Route: 048
     Dates: start: 20101014, end: 20101110
  22. ALLEGRA [Suspect]
     Route: 048
     Dates: start: 20101014, end: 20101110
  23. ALLEGRA [Suspect]
     Route: 048
     Dates: start: 20100520, end: 20100616
  24. ALLEGRA [Suspect]
     Route: 048
     Dates: start: 20110412, end: 20110516

REACTIONS (5)
  - HEPATITIS FULMINANT [None]
  - PLATELET COUNT DECREASED [None]
  - JAUNDICE [None]
  - TACHYCARDIA [None]
  - ASTHENIA [None]
